FAERS Safety Report 9054774 (Version 3)
Quarter: 2013Q1

REPORT INFORMATION
  Report Type: Spontaneous
  Country: IT (occurrence: IT)
  Receive Date: 20130208
  Receipt Date: 20130315
  Transmission Date: 20140127
  Serious: Yes (Other)
  Sender: FDA-Public Use
  Company Number: IT-SANOFI-AVENTIS-2013SA008334

PATIENT
  Age: 79 Year
  Sex: Male

DRUGS (6)
  1. LASIX [Suspect]
     Indication: PRODUCT USED FOR UNKNOWN INDICATION
     Route: 048
     Dates: start: 20111231, end: 20121230
  2. LISINOPRIL DIHYDRATE [Suspect]
     Indication: PRODUCT USED FOR UNKNOWN INDICATION
     Route: 048
     Dates: start: 20111231, end: 20121230
  3. AMLODIPINE BESILATE [Suspect]
     Indication: PRODUCT USED FOR UNKNOWN INDICATION
     Route: 048
     Dates: start: 20111231, end: 20121230
  4. NITROGLYCERIN TRANSDERMAL SYSTEM [Suspect]
     Indication: PRODUCT USED FOR UNKNOWN INDICATION
     Route: 062
     Dates: start: 20111231, end: 20121230
  5. ASA [Concomitant]
     Route: 048
  6. ALLOPURINOL [Concomitant]

REACTIONS (1)
  - Syncope [Recovering/Resolving]
